FAERS Safety Report 26073139 (Version 1)
Quarter: 2025Q4

REPORT INFORMATION
  Report Type: Spontaneous
  Country: EU (occurrence: EU)
  Receive Date: 20251121
  Receipt Date: 20251121
  Transmission Date: 20260118
  Serious: Yes (Hospitalization, Other)
  Sender: AUROBINDO
  Company Number: EU-AFSSAPS-GR2025001734

PATIENT
  Age: 62 Year
  Sex: Male
  Weight: 93.5 kg

DRUGS (2)
  1. ALPRAZOLAM [Suspect]
     Active Substance: ALPRAZOLAM
     Indication: Product used for unknown indication
     Dosage: 65 DOSAGE FORM, 1 TOTAL (0.5 MG X 60 CP)
     Dates: start: 20251020, end: 20251020
  2. ALCOHOL [Suspect]
     Active Substance: ALCOHOL
     Indication: Alcohol poisoning
     Dosage: 500 MILLILITER, 1 TOTAL
     Dates: start: 20251020, end: 20251020

REACTIONS (3)
  - Poisoning deliberate [Recovered/Resolved]
  - Coma [Recovered/Resolved]
  - Respiratory depression [Recovered/Resolved]

NARRATIVE: CASE EVENT DATE: 20251020
